FAERS Safety Report 9724211 (Version 2)
Quarter: 2013Q4

REPORT INFORMATION
  Report Type: Spontaneous
  Country: US (occurrence: US)
  Receive Date: 20131202
  Receipt Date: 20131202
  Transmission Date: 20140711
  Serious: No
  Sender: FDA-Public Use
  Company Number: US-AMGEN-USASP2013074541

PATIENT
  Age: 52 Year
  Sex: Female
  Weight: 47.62 kg

DRUGS (15)
  1. ENBREL [Suspect]
     Indication: RHEUMATOID ARTHRITIS
     Dosage: 50 MG, QWK
     Route: 058
     Dates: start: 19991201
  2. ENBREL [Suspect]
  3. LYRICA [Concomitant]
     Dosage: 25 MG, UNK
  4. PREDNISONE [Concomitant]
     Dosage: UNK
  5. SAVELLA [Concomitant]
     Dosage: 12.5 MG, UNK
  6. TRAMADOL HCL [Concomitant]
     Dosage: 50 MG, UNK
  7. XANAX [Concomitant]
     Dosage: 0.5 MG, UNK
  8. OMEPRAZOLE [Concomitant]
     Dosage: 10 MG, UNK
  9. VITAMIN D3 [Concomitant]
     Dosage: 5000 UNIT, UNK
  10. CALCIUM [Concomitant]
     Dosage: 500 UNK, UNK
  11. REMICADE [Concomitant]
     Dosage: UNK
  12. ORENCIA [Concomitant]
     Dosage: UNK
  13. RITUXAN [Concomitant]
     Dosage: UNK
  14. HUMIRA [Concomitant]
     Dosage: UNK
  15. METHOTREXATE [Concomitant]
     Dosage: UNK

REACTIONS (5)
  - Neck pain [Not Recovered/Not Resolved]
  - Arthralgia [Not Recovered/Not Resolved]
  - Pain in extremity [Not Recovered/Not Resolved]
  - Therapeutic response decreased [Not Recovered/Not Resolved]
  - Inflammation [Not Recovered/Not Resolved]
